FAERS Safety Report 8894106 (Version 1)
Quarter: 2012Q4

REPORT INFORMATION
  Report Type: 
  Country: US (occurrence: US)
  Receive Date: 20121107
  Receipt Date: 20121107
  Transmission Date: 20130627
  Serious: No
  Sender: FDA-Public Use
  Company Number: US-AMGEN-USASP2011060003

PATIENT
  Age: 41 Year
  Sex: Female

DRUGS (3)
  1. ENBREL [Suspect]
     Indication: RHEUMATOID ARTHRITIS
     Dosage: 50 mg, qwk
     Dates: start: 20111001, end: 20111026
  2. AZULFIDINE [Concomitant]
     Dosage: 4 mg, qd
     Dates: start: 201105
  3. TREXALL [Concomitant]
     Dosage: 8 mg, qwk
     Dates: start: 201105

REACTIONS (2)
  - Vaginal haemorrhage [Not Recovered/Not Resolved]
  - Uterine dilation and curettage [Not Recovered/Not Resolved]
